FAERS Safety Report 9476778 (Version 2)
Quarter: 2013Q3

REPORT INFORMATION
  Report Type: Report from Study
  Country: DE (occurrence: DE)
  Receive Date: 20130826
  Receipt Date: 20130826
  Transmission Date: 20140515
  Serious: Yes (Hospitalization)
  Sender: FDA-Public Use
  Company Number: PHHO2013DE009674

PATIENT
  Age: 65 Year
  Sex: Male
  Weight: 89 kg

DRUGS (4)
  1. TACROLIMUS [Suspect]
     Indication: RENAL TRANSPLANT
     Dosage: 11.5 MG, QD
     Dates: start: 20130605
  2. MYFORTIC [Suspect]
     Indication: RENAL TRANSPLANT
     Dosage: UNK
     Dates: start: 20130605
  3. URBASON                                 /GFR/ [Concomitant]
     Indication: RENAL TRANSPLANT
     Dosage: UNK
     Dates: start: 20130605
  4. SIMULECT [Concomitant]
     Indication: RENAL TRANSPLANT
     Dosage: UNK
     Dates: start: 20130605

REACTIONS (1)
  - Abdominal wound dehiscence [Recovered/Resolved]
